FAERS Safety Report 7715853-9 (Version None)
Quarter: 2011Q3

REPORT INFORMATION
  Report Type: 
  Country: None (occurrence: None)
  Receive Date: 20110829
  Receipt Date: 20110829
  Transmission Date: 20111222
  Serious: Yes (Other)
  Sender: FDA-Public Use
  Company Number: None

PATIENT
  Age: 37 Year
  Sex: Female
  Weight: 74.389 kg

DRUGS (2)
  1. EQUATE DAYTIME SINUS (OTC) [Suspect]
     Indication: SINUS CONGESTION
     Dosage: 2 GELCAPS
     Route: 048
     Dates: start: 20110822, end: 20110824
  2. EQUATE NITETIME SINUS (OTC) [Suspect]

REACTIONS (1)
  - HYPERSENSITIVITY [None]
